FAERS Safety Report 8730436 (Version 2)
Quarter: 2012Q4

REPORT INFORMATION
  Report Type: 
  Country: JP (occurrence: JP)
  Receive Date: 20120817
  Receipt Date: 20120914
  Transmission Date: 20130627
  Serious: Yes (Death)
  Sender: FDA-Public Use
  Company Number: JP-BAYER-2012-080495

PATIENT
  Age: 69 Year
  Sex: Male
  Weight: 47 kg

DRUGS (13)
  1. NEXAVAR [Suspect]
     Indication: HEPATIC NEOPLASM MALIGNANT
     Dosage: 400 mg, QD
     Route: 048
     Dates: start: 20120511, end: 20120517
  2. NEXAVAR [Suspect]
     Indication: HEPATIC NEOPLASM MALIGNANT
     Dosage: Daily dose 800 mg
     Route: 048
     Dates: start: 20120518, end: 20120529
  3. NEXAVAR [Suspect]
     Indication: HEPATIC NEOPLASM MALIGNANT
     Dosage: Daily dose 400 mg
     Route: 048
     Dates: start: 20120601, end: 20120626
  4. BARACLUDE [Concomitant]
     Indication: HEPATITIS B
     Dosage: 0.5 mg, QD
     Route: 048
     Dates: start: 20110802, end: 20120801
  5. BLOPRESS [Concomitant]
     Indication: HYPERTENSION
     Dosage: Daily dose 4 mg
     Route: 048
     Dates: start: 20110810, end: 20120626
  6. AMLODIPINE BESILATE [Concomitant]
     Indication: HYPERTENSION
     Dosage: Daily dose 10 mg
     Route: 048
     Dates: start: 20120216, end: 20120626
  7. TAKEPRON [Concomitant]
     Indication: GASTRIC ULCER
     Dosage: Daily dose 15 mg
     Route: 048
     Dates: start: 20120512, end: 20120801
  8. CALONAL [Concomitant]
     Indication: PAIN
     Dosage: Daily dose 900 mg
     Route: 048
     Dates: start: 20110806, end: 20120626
  9. MAGMITT [Concomitant]
     Indication: CONSTIPATION
     Dosage: Daily dose 990 mg
     Route: 048
     Dates: start: 20111110, end: 20120626
  10. SENNOSIDE [Concomitant]
     Indication: CONSTIPATION
     Dosage: Daily dose 12 mg
     Route: 048
     Dates: start: 20110927, end: 20120626
  11. FENTANYL CITRATE [Concomitant]
     Indication: PAIN
     Dosage: Daily dose 2 mg
     Route: 062
     Dates: start: 20120501, end: 20120626
  12. PROMAC [POLAPREZINC] [Concomitant]
     Dosage: Daily dose 75 mg
     Route: 048
     Dates: start: 20110927, end: 201205
  13. OXYCONTIN [Concomitant]
     Dosage: Daily dose 10 mg
     Route: 048
     Dates: start: 20111110, end: 201205

REACTIONS (3)
  - Liver abscess [Fatal]
  - Septic shock [Fatal]
  - Hepatic failure [Fatal]
